FAERS Safety Report 4352379-7 (Version None)
Quarter: 2004Q2

REPORT INFORMATION
  Report Type: 
  Country: None (occurrence: None)
  Receive Date: 20040423
  Receipt Date: 20030630
  Transmission Date: 20050107
  Serious: Yes (Hospitalization)
  Sender: FDA-Public Use
  Company Number: CIP03001453

PATIENT
  Age: 48 Year
  Sex: Female
  Weight: 60.8 kg

DRUGS (6)
  1. MACROBID [Suspect]
     Dosage: 100 MG EVERY EVENING, ORAL
     Route: 048
     Dates: start: 20030421, end: 20030502
  2. PRILOSEC [Concomitant]
  3. DRUG NOS [Concomitant]
  4. POLYETHYLENE GLYCOL (MACROGOL) [Concomitant]
  5. DITROPAN [Concomitant]
  6. DYAZIDE [Concomitant]

REACTIONS (16)
  - ACUTE RESPIRATORY DISTRESS SYNDROME [None]
  - BLOOD GLUCOSE INCREASED [None]
  - BLOOD POTASSIUM DECREASED [None]
  - CHEST DISCOMFORT [None]
  - COUGH [None]
  - CRYPTOGENIC ORGANIZING PNEUMONIA [None]
  - DYSPNOEA [None]
  - DYSPNOEA EXERTIONAL [None]
  - FEELING ABNORMAL [None]
  - HEART RATE INCREASED [None]
  - HYPOXIA [None]
  - INTERSTITIAL LUNG DISEASE [None]
  - MYALGIA [None]
  - PYREXIA [None]
  - WEIGHT DECREASED [None]
  - WHITE BLOOD CELL COUNT INCREASED [None]
